FAERS Safety Report 13678236 (Version 1)
Quarter: 2017Q2

REPORT INFORMATION
  Report Type: Spontaneous
  Country: US (occurrence: US)
  Receive Date: 20170621
  Receipt Date: 20170621
  Transmission Date: 20170830
  Serious: Yes (Other)
  Sender: FDA-Public Use
  Company Number: None

PATIENT
  Age: 59 Year
  Sex: Female
  Weight: 65 kg

DRUGS (4)
  1. DIPHENHYDRAMINE. [Concomitant]
     Active Substance: DIPHENHYDRAMINE
  2. ACETAMINOPHEN. [Concomitant]
     Active Substance: ACETAMINOPHEN
  3. RITUXIMAB 100 MG/10 ML X 2; 500 MG/50 ML [Suspect]
     Active Substance: RITUXIMAB
     Indication: CHEMOTHERAPY
     Dosage: ?          OTHER FREQUENCY:Q7 DAYS;?
     Route: 041
  4. HEPARIN FLUSH [Concomitant]
     Active Substance: HEPARIN SODIUM

REACTIONS (5)
  - Throat irritation [None]
  - Hypersensitivity [None]
  - Hyperhidrosis [None]
  - Pruritus [None]
  - Flushing [None]

NARRATIVE: CASE EVENT DATE: 20170620
